FAERS Safety Report 17444695 (Version 1)
Quarter: 2020Q1

REPORT INFORMATION
  Report Type: Spontaneous
  Country: JP (occurrence: JP)
  Receive Date: 20200221
  Receipt Date: 20200221
  Transmission Date: 20200409
  Serious: Yes (Hospitalization)
  Sender: FDA-Public Use
  Company Number: JP-MYLANLABS-2020M1018732

PATIENT
  Age: 22 Year
  Sex: Female

DRUGS (7)
  1. CYCLOPHOSPHAMIDE. [Suspect]
     Active Substance: CYCLOPHOSPHAMIDE
     Dosage: AS PART OF CHP REGIMEN (FOURTH LINE THERAPY).
     Route: 065
  2. DOXORUBICIN [Suspect]
     Active Substance: DOXORUBICIN
     Indication: ANAPLASTIC LARGE-CELL LYMPHOMA
     Dosage: FIRST LINE CHEMOTHERAPY AS PART OF CHOP REGIMEN
     Route: 065
  3. PREDNISOLONE. [Suspect]
     Active Substance: PREDNISOLONE
     Indication: ANAPLASTIC LARGE-CELL LYMPHOMA
     Dosage: AS PART OF CHP REGIMEN (FOURTH LINE THERAPY).
     Route: 065
  4. BRENTUXIMAB VEDOTIN [Suspect]
     Active Substance: BRENTUXIMAB VEDOTIN
     Indication: ANAPLASTIC LARGE-CELL LYMPHOMA
     Dosage: 1.8 MILLIGRAM/KILOGRAM, MONOTHERAPY (THIRD LINE THERAPY)
     Route: 065
  5. DOXORUBICIN [Suspect]
     Active Substance: DOXORUBICIN
     Dosage: AS PART OF CHP REGIMEN (FOURTH LINE THERAPY).
     Route: 065
  6. BRENTUXIMAB VEDOTIN [Suspect]
     Active Substance: BRENTUXIMAB VEDOTIN
     Dosage: FOURTH LINE THERAPY WITH CHP REGIMEN
     Route: 065
  7. CYCLOPHOSPHAMIDE. [Suspect]
     Active Substance: CYCLOPHOSPHAMIDE
     Indication: ANAPLASTIC LARGE-CELL LYMPHOMA
     Dosage: FIRST LINE CHEMOTHERAPY AS PART OF CHOP REGIMEN
     Route: 065

REACTIONS (1)
  - Drug ineffective [Unknown]
